FAERS Safety Report 18210411 (Version 1)
Quarter: 2020Q3

REPORT INFORMATION
  Report Type: Spontaneous
  Country: US (occurrence: US)
  Receive Date: 20200829
  Receipt Date: 20200829
  Transmission Date: 20201103
  Serious: No
  Sender: FDA-Public Use
  Company Number: US-009507513-2008USA011963

PATIENT
  Weight: 84.81 kg

DRUGS (1)
  1. NEXPLANON [Suspect]
     Active Substance: ETONOGESTREL
     Indication: CONTRACEPTION
     Dosage: IMPLANT (LEFT ARM), 1 TIME EVERY 3 YEARS
     Route: 059
     Dates: start: 20200821

REACTIONS (2)
  - No adverse event [Unknown]
  - Expired device used [Unknown]

NARRATIVE: CASE EVENT DATE: 20200821
